FAERS Safety Report 19719442 (Version 2)
Quarter: 2021Q3

REPORT INFORMATION
  Report Type: Spontaneous
  Country: US (occurrence: US)
  Receive Date: 20210818
  Receipt Date: 20210827
  Transmission Date: 20211014
  Serious: Yes (Hospitalization)
  Sender: FDA-Public Use
  Company Number: US-AVEO ONCOLOGY-2021-AVEO-US003497

PATIENT

DRUGS (18)
  1. CRANBERRY. [Concomitant]
     Active Substance: CRANBERRY
  2. WARFARIN [Concomitant]
     Active Substance: WARFARIN
     Dosage: UNK
  3. LEVOTHYROXINE. [Concomitant]
     Active Substance: LEVOTHYROXINE
  4. METOPROLOL. [Concomitant]
     Active Substance: METOPROLOL
  5. MULTI VITAMIN [Concomitant]
     Active Substance: VITAMINS
  6. PROTONIX [Concomitant]
     Active Substance: PANTOPRAZOLE SODIUM
  7. FOTIVDA [Suspect]
     Active Substance: TIVOZANIB HYDROCHLORIDE
     Indication: RENAL CELL CARCINOMA
     Dosage: 1.34 MG, CYCLIC  DAILY FOR 21 DAYS THEN 7 DAYS OFF
     Route: 048
     Dates: start: 20210714, end: 20210810
  8. AMIODARONE [Concomitant]
     Active Substance: AMIODARONE
  9. VITAMIN D [Concomitant]
     Active Substance: VITAMIN D NOS
  10. OMEPRAZOLE. [Concomitant]
     Active Substance: OMEPRAZOLE
  11. ASPIRIN. [Concomitant]
     Active Substance: ASPIRIN
  12. BIOTIN [Concomitant]
     Active Substance: BIOTIN
  13. DEXAMETHASONE. [Concomitant]
     Active Substance: DEXAMETHASONE
  14. ELIQUIS [Concomitant]
     Active Substance: APIXABAN
  15. LOSARTAN. [Concomitant]
     Active Substance: LOSARTAN
  16. AMLODIPINE [Concomitant]
     Active Substance: AMLODIPINE BESYLATE
  17. CALCIUM [Concomitant]
     Active Substance: CALCIUM
  18. SIMVASTATIN. [Concomitant]
     Active Substance: SIMVASTATIN

REACTIONS (3)
  - Chest pain [Unknown]
  - Dyspnoea exertional [Unknown]
  - Feeling abnormal [Unknown]

NARRATIVE: CASE EVENT DATE: 20210810
